FAERS Safety Report 8826260 (Version 2)
Quarter: 2015Q3

REPORT INFORMATION
  Report Type: Spontaneous
  Country: US (occurrence: US)
  Receive Date: 20121008
  Receipt Date: 20150811
  Transmission Date: 20151125
  Serious: Yes (Hospitalization, Other)
  Sender: FDA-Public Use
  Company Number: US-BAYER-2012-103617

PATIENT
  Age: 26 Year
  Sex: Female

DRUGS (3)
  1. PARAGARD T 380A [Concomitant]
     Active Substance: COPPER
     Dosage: UNK
     Dates: start: 20091203
  2. PREDNISONE. [Concomitant]
     Active Substance: PREDNISONE
  3. MIRENA [Suspect]
     Active Substance: LEVONORGESTREL
     Dosage: 20 MCG/24HR, CONT
     Route: 015
     Dates: start: 20090224, end: 20131202

REACTIONS (17)
  - Cholecystectomy [None]
  - General physical health deterioration [None]
  - Malaise [None]
  - Injury [Recovered/Resolved]
  - Emotional distress [None]
  - Device dislocation [None]
  - Coital bleeding [None]
  - Device dislocation [Recovered/Resolved]
  - Hormone level abnormal [None]
  - Intestinal obstruction [None]
  - Cold sweat [None]
  - Hot flush [None]
  - Genital haemorrhage [None]
  - Device dislocation [Recovered/Resolved]
  - Depression [None]
  - Pain [Recovered/Resolved]
  - Device use error [None]

NARRATIVE: CASE EVENT DATE: 20091119
